FAERS Safety Report 9214164 (Version 1)
Quarter: 2013Q1

REPORT INFORMATION
  Report Type: Spontaneous
  Country: US (occurrence: None)
  Receive Date: 20120827
  Receipt Date: 20120827
  Transmission Date: 20140127
  Serious: No
  Sender: FDA-Public Use
  Company Number: 351544

PATIENT
  Age: 55 Year
  Sex: Female

DRUGS (5)
  1. VICTOZA [Suspect]
     Indication: TYPE 2 DIABETES MELLITUS
     Route: 058
  2. JANUMET [Concomitant]
  3. ALLEGRA [Concomitant]
  4. LOSARTAN [Concomitant]
  5. FUROSEMIDE [Concomitant]

REACTIONS (4)
  - Weight decreased [None]
  - Abdominal pain upper [None]
  - Rash [None]
  - Nausea [None]
